FAERS Safety Report 19137911 (Version 1)
Quarter: 2021Q2

REPORT INFORMATION
  Report Type: Spontaneous
  Country: US (occurrence: US)
  Receive Date: 20210414
  Receipt Date: 20210414
  Transmission Date: 20210717
  Serious: No
  Sender: FDA-Public Use
  Company Number: US-009507513-2103USA006276

PATIENT
  Age: 64 Year
  Sex: Female

DRUGS (1)
  1. BELSOMRA [Suspect]
     Active Substance: SUVOREXANT
     Indication: SLEEP DISORDER
     Dosage: 1 TABLET (20 MILLIGRAM) PER NIGHT
     Route: 048
     Dates: start: 201803, end: 20210305

REACTIONS (4)
  - Insomnia [Not Recovered/Not Resolved]
  - Product dose omission issue [Unknown]
  - Tremor [Not Recovered/Not Resolved]
  - Increased appetite [Not Recovered/Not Resolved]

NARRATIVE: CASE EVENT DATE: 20210305
